FAERS Safety Report 6193327-7 (Version None)
Quarter: 2009Q2

REPORT INFORMATION
  Report Type: 
  Country: None (occurrence: None)
  Receive Date: 20090514
  Receipt Date: 20090430
  Transmission Date: 20091009
  Serious: Yes (Hospitalization)
  Sender: FDA-Public Use
  Company Number: 2009S1006791

PATIENT
  Age: 68 Year
  Sex: Female
  Weight: 83.9154 kg

DRUGS (6)
  1. ALLOPURINOL [Suspect]
     Indication: GOUT
     Dosage: 100 MG; DAILY; ORAL, 200 MG; DAILY; ORAL
     Route: 048
     Dates: start: 20090128, end: 20090228
  2. ALLOPURINOL [Suspect]
     Indication: GOUT
     Dosage: 100 MG; DAILY; ORAL, 200 MG; DAILY; ORAL
     Route: 048
     Dates: start: 20090301, end: 20090309
  3. NORVASC [Concomitant]
  4. DIOVAN [Concomitant]
  5. ZOLOFT [Concomitant]
  6. VALIUM [Concomitant]

REACTIONS (4)
  - DEHYDRATION [None]
  - LIPIDS INCREASED [None]
  - RENAL DISORDER [None]
  - STEVENS-JOHNSON SYNDROME [None]
